FAERS Safety Report 20820108 (Version 5)
Quarter: 2023Q1

REPORT INFORMATION
  Report Type: Report from Study
  Country: BR (occurrence: BR)
  Receive Date: 20220512
  Receipt Date: 20230315
  Transmission Date: 20230418
  Serious: Yes (Hospitalization, Other)
  Sender: FDA-Public Use
  Company Number: BR-NOVARTISPH-NVSC2022BR107902

PATIENT
  Age: 71 Year
  Sex: Male
  Weight: 66 kg

DRUGS (4)
  1. TAFINLAR [Suspect]
     Active Substance: DABRAFENIB MESYLATE
     Indication: Malignant melanoma
     Dosage: UNK (START: MAYBE STARTED TO TAKE IN APRIL, STOP: ABOUT TWO WEEKS AGO)
     Route: 065
  2. TAFINLAR [Suspect]
     Active Substance: DABRAFENIB MESYLATE
     Dosage: 75 MG (2 TABLETS IN THE MORNING AND 2 TABLETS IN THE EVENING) (NOTE OF THE PACKAGES WAS THE ONE SENT
     Route: 048
     Dates: start: 20200419, end: 20220426
  3. TAFINLAR [Suspect]
     Active Substance: DABRAFENIB MESYLATE
     Dosage: 75 MG (2 TABLETS IN THE MORNING AND 2 TABLETS IN THE EVENING) (NOTE OF THE PACKAGES WAS THE ONE SENT
     Route: 048
     Dates: start: 20220512
  4. MEKINIST [Suspect]
     Active Substance: TRAMETINIB DIMETHYL SULFOXIDE
     Indication: Malignant melanoma
     Dosage: UNK (START: MAYBE STARTED TO TAKE IN APRIL, STOP: ABOUT TWO WEEKS AGO)
     Route: 065

REACTIONS (22)
  - Colitis [Unknown]
  - Wound [Unknown]
  - Pain [Unknown]
  - Malaise [Unknown]
  - Neoplasm malignant [Recovering/Resolving]
  - Head discomfort [Not Recovered/Not Resolved]
  - Insomnia [Recovering/Resolving]
  - Condition aggravated [Recovering/Resolving]
  - Abdominal pain upper [Unknown]
  - Pyrexia [Recovered/Resolved]
  - Chills [Recovering/Resolving]
  - Fatigue [Unknown]
  - Pyrexia [Not Recovered/Not Resolved]
  - Rash [Unknown]
  - Diarrhoea [Unknown]
  - Memory impairment [Not Recovered/Not Resolved]
  - Nodule [Not Recovered/Not Resolved]
  - Mass [Unknown]
  - Nausea [Not Recovered/Not Resolved]
  - Headache [Not Recovered/Not Resolved]
  - Pulmonary mass [Unknown]
  - Drug ineffective [Unknown]

NARRATIVE: CASE EVENT DATE: 20220426
